FAERS Safety Report 7518539-9 (Version None)
Quarter: 2011Q2

REPORT INFORMATION
  Report Type: 
  Country: None (occurrence: None)
  Receive Date: 20110601
  Receipt Date: 20110601
  Transmission Date: 20111010
  Serious: Yes (Disabling)
  Sender: FDA-Public Use
  Company Number: None

PATIENT
  Sex: Female
  Weight: 43.9989 kg

DRUGS (1)
  1. CHANTIX [Suspect]
     Indication: SMOKING CESSATION THERAPY
     Dosage: .5 MG TWICE DAILY PO AND 1MG TWICE DAILY PO
     Route: 048
     Dates: start: 20110401, end: 20110515

REACTIONS (3)
  - DIPLOPIA [None]
  - NAUSEA [None]
  - VISUAL ACUITY REDUCED [None]
